FAERS Safety Report 10202551 (Version 1)
Quarter: 2014Q2

REPORT INFORMATION
  Report Type: Spontaneous
  Country: DE (occurrence: DE)
  Receive Date: 20140528
  Receipt Date: 20140528
  Transmission Date: 20141212
  Serious: Yes (Congenital Anomaly, Other)
  Sender: FDA-Public Use
  Company Number: DE-TEVA-482600GER

PATIENT
  Age: 1 Day
  Sex: Female

DRUGS (1)
  1. PAROXETIN [Suspect]
     Route: 064

REACTIONS (4)
  - Neonatal respiratory distress syndrome [Recovered/Resolved]
  - Large for dates baby [Unknown]
  - Atrial septal defect [Unknown]
  - Drug withdrawal syndrome [Recovered/Resolved]
